FAERS Safety Report 12074698 (Version 2)
Quarter: 2016Q4

REPORT INFORMATION
  Report Type: Spontaneous
  Country: GR (occurrence: GR)
  Receive Date: 20160212
  Receipt Date: 20161014
  Transmission Date: 20170206
  Serious: Yes (Other)
  Sender: FDA-Public Use
  Company Number: GR-APOPHARMA-2016AP006346

PATIENT
  Age: 41 Year
  Sex: Male
  Weight: 70 kg

DRUGS (7)
  1. GLUCOPHAGE [Suspect]
     Active Substance: METFORMIN HYDROCHLORIDE
     Indication: DIABETES MELLITUS
     Dosage: 850 MG, QD
     Route: 065
     Dates: start: 20150706
  2. FERRIPROX [Suspect]
     Active Substance: DEFERIPRONE
     Indication: THALASSAEMIA BETA
     Dosage: UNK
     Route: 048
     Dates: start: 20030405, end: 201112
  3. XARELTO [Suspect]
     Active Substance: RIVAROXABAN
     Indication: PULMONARY HYPERTENSION
     Dosage: 1 DF, QD
     Route: 065
     Dates: start: 20150706
  4. LOPRESSOR [Suspect]
     Active Substance: METOPROLOL TARTRATE
     Indication: PRODUCT USED FOR UNKNOWN INDICATION
     Dosage: 25 MG, BID
     Route: 065
     Dates: start: 201510
  5. FERRIPROX [Suspect]
     Active Substance: DEFERIPRONE
     Dosage: UNK UNK,
     Route: 048
     Dates: start: 20160504
  6. JANUVIA [Suspect]
     Active Substance: SITAGLIPTIN PHOSPHATE
     Indication: DIABETES MELLITUS
     Dosage: 1 DF, QD
     Route: 065
     Dates: start: 20150706
  7. FERRIPROX [Suspect]
     Active Substance: DEFERIPRONE
     Indication: IRON OVERLOAD
     Dosage: 7000 MG, QD
     Route: 048
     Dates: start: 201507, end: 20151208

REACTIONS (4)
  - Asthenia [Recovering/Resolving]
  - Iron binding capacity total decreased [Recovering/Resolving]
  - Fatigue [Recovering/Resolving]
  - Serum ferritin increased [Recovered/Resolved with Sequelae]

NARRATIVE: CASE EVENT DATE: 2015
